FAERS Safety Report 5611319-0 (Version None)
Quarter: 2008Q1

REPORT INFORMATION
  Report Type: 
  Country: None (occurrence: None)
  Receive Date: 20080201
  Receipt Date: 20080121
  Transmission Date: 20080703
  Serious: Yes (Other)
  Sender: FDA-Public Use
  Company Number: GB-PFIZER INC-2007094694

PATIENT
  Sex: Female
  Weight: 71 kg

DRUGS (9)
  1. GABAPENTIN [Suspect]
     Indication: NEURALGIA
     Dates: start: 20070727, end: 20071104
  2. LYRICA [Interacting]
     Indication: NEURALGIA
     Dosage: DAILY DOSE:375MG-FREQ:EVERY DAY
     Route: 048
  3. CITALOPRAM HYDROBROMIDE [Interacting]
     Indication: DEPRESSED MOOD
     Route: 048
  4. BISACODYL [Concomitant]
  5. COD-LIVER OIL [Concomitant]
  6. VITAMINS [Concomitant]
  7. TRACE ELEMENTS [Concomitant]
  8. LIDOCAINE [Concomitant]
     Route: 062
  9. GLUCOSAMINE [Concomitant]

REACTIONS (33)
  - ACTIVITIES OF DAILY LIVING IMPAIRED [None]
  - AMNESIA [None]
  - ANAL SPHINCTER ATONY [None]
  - ANORGASMIA [None]
  - ARTHRALGIA [None]
  - ATONIC URINARY BLADDER [None]
  - BODY DYSMORPHIC DISORDER [None]
  - BRADYCARDIA [None]
  - COGNITIVE DISORDER [None]
  - CONSTIPATION [None]
  - DIARRHOEA [None]
  - DISTURBANCE IN ATTENTION [None]
  - DRUG INEFFECTIVE [None]
  - DRUG INTERACTION [None]
  - DRY EYE [None]
  - FLATULENCE [None]
  - GINGIVAL SWELLING [None]
  - HEADACHE [None]
  - HYPOTENSION [None]
  - INCONTINENCE [None]
  - JOINT SWELLING [None]
  - LIBIDO DECREASED [None]
  - MUCOUS MEMBRANE DISORDER [None]
  - MYALGIA [None]
  - OEDEMA [None]
  - PAIN [None]
  - POLLAKIURIA [None]
  - QUALITY OF LIFE DECREASED [None]
  - TOOTH DISORDER [None]
  - UNEVALUABLE EVENT [None]
  - URINARY RETENTION [None]
  - VISUAL ACUITY REDUCED [None]
  - WEIGHT INCREASED [None]
